FAERS Safety Report 15765162 (Version 3)
Quarter: 2019Q1

REPORT INFORMATION
  Report Type: Spontaneous
  Country: US (occurrence: US)
  Receive Date: 20181227
  Receipt Date: 20190129
  Transmission Date: 20190417
  Serious: Yes (Hospitalization, Other)
  Sender: FDA-Public Use
  Company Number: US-PCCINC-2018-PEL-003543

PATIENT

DRUGS (2)
  1. GABLOFEN [Suspect]
     Active Substance: BACLOFEN
     Indication: MUSCLE SPASTICITY
     Dosage: 1451.6 MICROGRAM, QD
     Route: 037
  2. GABLOFEN [Suspect]
     Active Substance: BACLOFEN
     Indication: BRAIN INJURY

REACTIONS (5)
  - Lactic acidosis [Unknown]
  - Drug withdrawal syndrome [Recovered/Resolved]
  - Device malfunction [Recovered/Resolved]
  - Muscle spasticity [Unknown]
  - Tremor [Unknown]

NARRATIVE: CASE EVENT DATE: 20181009
